FAERS Safety Report 9234552 (Version 1)
Quarter: 2013Q2

REPORT INFORMATION
  Report Type: Report from Study
  Country: FR (occurrence: FR)
  Receive Date: 20130416
  Receipt Date: 20130416
  Transmission Date: 20140414
  Serious: Yes (Hospitalization)
  Sender: FDA-Public Use
  Company Number: FR-GLAXOSMITHKLINE-Z0002574A

PATIENT
  Age: 46 Year
  Sex: Female
  Weight: 53 kg

DRUGS (8)
  1. PAZOPANIB [Suspect]
     Indication: OVARIAN CANCER
     Dosage: 800MG PER DAY
     Route: 048
     Dates: start: 20090827
  2. LERCAN [Concomitant]
     Indication: HYPERTENSION
     Dosage: 5MG PER DAY
     Route: 048
     Dates: start: 20091120, end: 200912
  3. TRIATEC [Concomitant]
     Indication: HYPERTENSION
     Dosage: 10MG PER DAY
     Route: 048
     Dates: start: 20091120
  4. CORTANCYL [Concomitant]
     Indication: POLYMYOSITIS
     Dosage: 15MG PER DAY
     Route: 048
     Dates: start: 20090923
  5. IMODIUM [Concomitant]
     Indication: DIARRHOEA
     Dosage: 2MG TWICE PER DAY
     Route: 048
     Dates: start: 200910, end: 20100108
  6. DIFFU K [Concomitant]
     Indication: HYPOKALAEMIA
     Dosage: 2400MG PER DAY
     Route: 048
     Dates: start: 20090922
  7. SMECTA [Concomitant]
     Indication: DIARRHOEA
     Dosage: 3G UNKNOWN
     Route: 048
     Dates: start: 20091105, end: 20100108
  8. KERLONE [Concomitant]
     Indication: HYPERTENSION
     Dosage: 20MG PER DAY
     Route: 048
     Dates: start: 200912, end: 20100401

REACTIONS (1)
  - Wound dehiscence [Recovered/Resolved]
